FAERS Safety Report 5305614-2 (Version None)
Quarter: 2007Q2

REPORT INFORMATION
  Report Type: 
  Country: None (occurrence: None)
  Receive Date: 20070419
  Receipt Date: 20070419
  Transmission Date: 20071010
  Serious: Yes (Life-Threatening, Hospitalization)
  Sender: FDA-Public Use
  Company Number: None

PATIENT
  Age: 39 Year
  Sex: Female

DRUGS (1)
  1. BACTRIM DS [Suspect]
     Indication: URINARY TRACT INFECTION
     Dosage: 1 TABLET   BID   PO  2 DOSES
     Route: 048
     Dates: start: 20070307, end: 20070307

REACTIONS (5)
  - APLASTIC ANAEMIA [None]
  - BONE MARROW FAILURE [None]
  - DYSURIA [None]
  - HEPATITIS C [None]
  - HYPERGLYCAEMIA [None]
